FAERS Safety Report 7531210-2 (Version None)
Quarter: 2011Q2

REPORT INFORMATION
  Report Type: 
  Country: None (occurrence: None)
  Receive Date: 20110608
  Receipt Date: 20110531
  Transmission Date: 20111010
  Serious: Yes (Other)
  Sender: FDA-Public Use
  Company Number: US-US-EMD SERONO, INC.-7062870

PATIENT
  Sex: Female
  Weight: 113 kg

DRUGS (9)
  1. NOVOLOG [Concomitant]
  2. SODIUM BICARBONATE [Concomitant]
  3. LANTUS [Concomitant]
  4. METOLAZONE [Concomitant]
  5. LEVOTHYROXINE SODIUM [Concomitant]
  6. POTASSIUM CHLORIDE [Concomitant]
  7. REBIF [Suspect]
     Indication: PRODUCT USED FOR UNKNOWN INDICATION
  8. LASIX [Concomitant]
  9. METOPROLOL TARTRATE [Concomitant]

REACTIONS (1)
  - UTERINE CANCER [None]
